FAERS Safety Report 21921174 (Version 2)
Quarter: 2023Q1

REPORT INFORMATION
  Report Type: Spontaneous
  Country: US (occurrence: US)
  Receive Date: 20230127
  Receipt Date: 20230310
  Transmission Date: 20230418
  Serious: Yes (Other)
  Sender: FDA-Public Use
  Company Number: US-AMERICAN REGENT INC-2023000194

PATIENT
  Sex: Male
  Weight: 127.9 kg

DRUGS (28)
  1. VENOFER [Suspect]
     Active Substance: IRON SUCROSE
     Indication: Iron deficiency anaemia
     Dosage: 300 MILLIGRAM
     Route: 042
     Dates: start: 2021, end: 2021
  2. VENOFER [Suspect]
     Active Substance: IRON SUCROSE
     Indication: Iron deficiency
     Dosage: 300 MILLIGRAM
     Route: 042
     Dates: start: 2021, end: 2021
  3. VENOFER [Suspect]
     Active Substance: IRON SUCROSE
     Dosage: 300 MILLIGRAM
     Route: 042
     Dates: start: 2021, end: 2021
  4. VENOFER [Suspect]
     Active Substance: IRON SUCROSE
     Dosage: 300 MILLIGRAM
     Route: 042
     Dates: start: 2021, end: 2021
  5. VENOFER [Suspect]
     Active Substance: IRON SUCROSE
     Dosage: 300 MILLIGRAM
     Route: 042
     Dates: start: 2021, end: 2021
  6. VENOFER [Suspect]
     Active Substance: IRON SUCROSE
     Dosage: 300 MILLIGRAM IN 0.9 % SODIUM CHLORIDE 100 ML
     Route: 042
     Dates: start: 20210419, end: 20210419
  7. VENOFER [Suspect]
     Active Substance: IRON SUCROSE
     Dosage: 300 MILLIGRAM IN 0.9 % SODIUM CHLORIDE 250 ML
     Route: 042
     Dates: start: 20211013, end: 20211013
  8. VENOFER [Suspect]
     Active Substance: IRON SUCROSE
     Dosage: 300 MILLIGRAM IN 0.9 % SODIUM CHLORIDE 250 ML
     Route: 042
     Dates: start: 20211022, end: 20211022
  9. VENOFER [Suspect]
     Active Substance: IRON SUCROSE
     Dosage: 300 MILLIGRAM IN 0.9 % SODIUM CHLORIDE 250 ML
     Route: 042
     Dates: start: 20211029, end: 20211029
  10. VENOFER [Suspect]
     Active Substance: IRON SUCROSE
     Dosage: IRON SUCROSE IN 0.9% NACL PREMIX, 300 MG/265 ML
     Route: 042
     Dates: start: 20221017, end: 20221017
  11. VENOFER [Suspect]
     Active Substance: IRON SUCROSE
     Dosage: 300 MILLIGRAM IN 0.9 % SODIUM CHLORIDE 250 ML
     Route: 042
     Dates: start: 20221025, end: 20221025
  12. VENOFER [Suspect]
     Active Substance: IRON SUCROSE
     Dosage: 300 MILLIGRAM IN 0.9 % SODIUM CHLORIDE 250 ML
     Route: 042
     Dates: start: 20230113, end: 20230113
  13. VENOFER [Suspect]
     Active Substance: IRON SUCROSE
     Dosage: 300 MILLIGRAM IN 0.9 % SODIUM CHLORIDE 250 ML
     Route: 042
     Dates: start: 20230120, end: 20230120
  14. PAXIL [Concomitant]
     Active Substance: PAROXETINE HYDROCHLORIDE
     Indication: Product used for unknown indication
     Dosage: 30 MILLIGRAM, QD
     Route: 048
     Dates: start: 20160728
  15. XANAX [Concomitant]
     Active Substance: ALPRAZOLAM
     Indication: Product used for unknown indication
     Dosage: TAKE 1 TABLET 3 TIMES DAILY AS NEEDED
     Route: 048
  16. TYLENOL [Concomitant]
     Active Substance: ACETAMINOPHEN
     Indication: Product used for unknown indication
     Dosage: 500 MILLIGRAM, PRN
     Route: 048
  17. ZOFRAN [Concomitant]
     Active Substance: ONDANSETRON HYDROCHLORIDE
     Indication: Product used for unknown indication
     Dosage: UNK
     Route: 065
     Dates: start: 20171119
  18. CETIRIZINE [Concomitant]
     Active Substance: CETIRIZINE HYDROCHLORIDE
     Indication: Product used for unknown indication
     Dosage: TAKE DAILY
     Route: 048
  19. ALBUTEROL SULFATE [Concomitant]
     Active Substance: ALBUTEROL SULFATE
     Indication: Asthma
     Dosage: INHALE 2 PUFFS INTO THE LUNGS EVERY 4 HOURS AS NEEDED
     Dates: start: 20180131
  20. ALBUTEROL SULFATE [Concomitant]
     Active Substance: ALBUTEROL SULFATE
     Indication: Wheezing
  21. BENADRYL [Concomitant]
     Active Substance: DIPHENHYDRAMINE HYDROCHLORIDE
     Indication: Hypersensitivity
     Dosage: TAKE 1 CAPSULE EVERY 4 HOURS AS NEEDED
     Route: 048
     Dates: start: 20180216
  22. PRILOSEC [Concomitant]
     Active Substance: OMEPRAZOLE MAGNESIUM
     Indication: Product used for unknown indication
     Dosage: 40 MILLIGRAM, QD
     Route: 048
  23. REMERON [Concomitant]
     Active Substance: MIRTAZAPINE
     Indication: Product used for unknown indication
     Dosage: 3.75 MILLIGRAM, PRN
     Route: 048
  24. NASACORT AQ [Concomitant]
     Active Substance: TRIAMCINOLONE ACETONIDE
     Indication: Product used for unknown indication
     Dosage: INTO NOSTRIL(S)
     Route: 045
  25. PROBIOTICS NOS [Concomitant]
     Active Substance: PROBIOTICS NOS
     Indication: Product used for unknown indication
     Dosage: TAKE BY MOUTH
     Route: 048
  26. MEDROL [Concomitant]
     Active Substance: METHYLPREDNISOLONE
     Indication: Product used for unknown indication
     Dosage: FOLLOW PACKAGE DIRECTIONS
     Route: 048
     Dates: start: 20210408
  27. VITAMIN B12 [Concomitant]
     Active Substance: CYANOCOBALAMIN
     Indication: Product used for unknown indication
     Dosage: TAKE 1 TABLET DAILY
     Route: 048
     Dates: start: 20210408
  28. BENADRYL [Concomitant]
     Active Substance: DIPHENHYDRAMINE HYDROCHLORIDE
     Indication: Premedication
     Dosage: 25 MILLIGRAM IN 0.9% SODIUM CHLORIDE 50 ML
     Route: 042
     Dates: start: 20211013, end: 20211013

REACTIONS (5)
  - Injection site thrombosis [Unknown]
  - Pain in extremity [Unknown]
  - Drug ineffective [Unknown]
  - Off label use [Unknown]
  - Drug monitoring procedure not performed [Unknown]

NARRATIVE: CASE EVENT DATE: 20210101
